FAERS Safety Report 7582925-1 (Version None)
Quarter: 2011Q2

REPORT INFORMATION
  Report Type: 
  Country: None (occurrence: None)
  Receive Date: 20110527
  Receipt Date: 20101109
  Transmission Date: 20111010
  Serious: Yes (Hospitalization, Other)
  Sender: FDA-Public Use
  Company Number: US201009004587

PATIENT
  Age: 89 Year
  Sex: Female

DRUGS (12)
  1. CARVEDILOL [Concomitant]
  2. FOSINOPRIL SODIUM [Concomitant]
  3. GLIMEPIRIDE [Concomitant]
  4. LEVOTHYROXINE SODIUM [Concomitant]
  5. SIMVASTATIN [Concomitant]
  6. NITROGLYCERIN [Concomitant]
  7. PLAVIX [Concomitant]
  8. LEVEMIR [Concomitant]
  9. BYETTA [Suspect]
     Dosage: 5 UG, 2/D, SUBCUTANEOUS, 10 UG, 2/D, SUBCUTANEOUS,
     Route: 058
     Dates: start: 20060607, end: 20090728
  10. BYETTA [Suspect]
     Dosage: 5 UG, 2/D, SUBCUTANEOUS, 10 UG, 2/D, SUBCUTANEOUS,
     Route: 058
     Dates: start: 20100628, end: 20100913
  11. BYETTA [Suspect]
     Dosage: 5 UG, 2/D, SUBCUTANEOUS, 10 UG, 2/D, SUBCUTANEOUS,
     Route: 058
     Dates: start: 20090729, end: 20100628
  12. FAMOTIDINE [Concomitant]

REACTIONS (3)
  - OFF LABEL USE [None]
  - WEIGHT DECREASED [None]
  - PANCREATITIS [None]
